FAERS Safety Report 12991578 (Version 5)
Quarter: 2020Q1

REPORT INFORMATION
  Report Type: Spontaneous
  Country: US (occurrence: US)
  Receive Date: 20161201
  Receipt Date: 20200330
  Transmission Date: 20200409
  Serious: Yes (Hospitalization, Disabling, Other)
  Sender: FDA-Public Use
  Company Number: US-GLAXOSMITHKLINE-US2016177347

PATIENT
  Age: 62 Year
  Sex: Female
  Weight: 68.48 kg

DRUGS (3)
  1. ADVAIR HFA [Suspect]
     Active Substance: FLUTICASONE PROPIONATE\SALMETEROL XINAFOATE
     Indication: PULMONARY THROMBOSIS
     Dosage: UNK
     Route: 055
     Dates: start: 20160331, end: 20200204
  2. ADVAIR HFA [Suspect]
     Active Substance: FLUTICASONE PROPIONATE\SALMETEROL XINAFOATE
     Indication: CHRONIC OBSTRUCTIVE PULMONARY DISEASE
  3. ADVAIR HFA [Suspect]
     Active Substance: FLUTICASONE PROPIONATE\SALMETEROL XINAFOATE
     Indication: INTERSTITIAL LUNG DISEASE

REACTIONS (4)
  - Cerebrovascular accident [Not Recovered/Not Resolved]
  - Product use in unapproved indication [Unknown]
  - Lung operation [Unknown]
  - Thrombosis [Unknown]

NARRATIVE: CASE EVENT DATE: 201608
